FAERS Safety Report 11233924 (Version 1)
Quarter: 2015Q3

REPORT INFORMATION
  Report Type: Spontaneous
  Country: US (occurrence: US)
  Receive Date: 20150702
  Receipt Date: 20150702
  Transmission Date: 20151125
  Serious: No
  Sender: FDA-Public Use
  Company Number: US-BAYER-2015-369887

PATIENT
  Age: 75 Year
  Sex: Female
  Weight: 57.14 kg

DRUGS (4)
  1. VITAMINS NOS [Concomitant]
     Active Substance: VITAMINS
     Dosage: UNK
  2. MIRALAX [Suspect]
     Active Substance: POLYETHYLENE GLYCOL 3350
     Indication: CONSTIPATION
     Dosage: 1 DOSE, QD
     Route: 048
     Dates: start: 201506, end: 20150701
  3. LIPITOR [Concomitant]
     Active Substance: ATORVASTATIN CALCIUM
     Dosage: UNK
  4. TYLENOL [Concomitant]
     Active Substance: ACETAMINOPHEN
     Dosage: UNK

REACTIONS (2)
  - Product use issue [None]
  - Drug effect decreased [None]

NARRATIVE: CASE EVENT DATE: 201506
